FAERS Safety Report 5472354-9 (Version None)
Quarter: 2007Q3

REPORT INFORMATION
  Report Type: 
  Country: None (occurrence: None)
  Receive Date: 20070930
  Receipt Date: 20070926
  Transmission Date: 20080115
  Serious: Yes (Death, Hospitalization)
  Sender: FDA-Public Use
  Company Number: US-SHR-US-2007-015857

PATIENT
  Age: 39 Year
  Sex: Female

DRUGS (1)
  1. YASMIN [Suspect]
     Dosage: 1 TAB(S), UNK
     Route: 048
     Dates: start: 20040902

REACTIONS (3)
  - CAVERNOUS SINUS THROMBOSIS [None]
  - HEADACHE [None]
  - VOMITING [None]
